FAERS Safety Report 9199215 (Version 3)
Quarter: 2013Q2

REPORT INFORMATION
  Report Type: Spontaneous
  Country: US (occurrence: None)
  Receive Date: 20130325
  Receipt Date: 20130401
  Transmission Date: 20140414
  Serious: No
  Sender: FDA-Public Use
  Company Number: 2013US-004594

PATIENT
  Age: 48 Year
  Sex: Male
  Weight: 130.9 kg

DRUGS (26)
  1. OMONTYS (PEGINESATIDE) SOLUTION FOR INJECTION [Suspect]
     Indication: NEPHROGENIC ANAEMIA
     Route: 042
     Dates: start: 20130211, end: 20130211
  2. EPOGEN (EPOETIN ALFA) [Concomitant]
  3. ZEMPLAR (PARICALCITOL) [Concomitant]
  4. VENOFER [Concomitant]
  5. HEPARIN SODIUM (HEPARIN SODIUM) [Concomitant]
  6. ZYLOPRIM (ALLOPURINOL) [Concomitant]
  7. CELEXA (CITALOPRAM HYDROBROMIDE) [Concomitant]
  8. ZOCOR (SIMVASTATIN) [Concomitant]
  9. MULTIVITAMIN (ASCORBIC ACID, CALCIUM PANTOTHENATE, ERGOCALCIFEROL, NICOTINAMIDE, PYRIDOXINE HYDROCHLORIDE, RETINOL, RIBOFLAVIN, THIAMINE HYDROCHLORIDE) [Concomitant]
  10. NOVOLOG (INSULIN ASPART) [Concomitant]
  11. NEURONTIN (GABAPENTIN) [Concomitant]
  12. CIALIS (TADALAFIL) [Concomitant]
  13. FOLIC ACID (FOLIC ACID) [Concomitant]
  14. AMARYL (GLIMEPIRIDE) [Concomitant]
  15. JANUVIA (SITAGLIPTIN PHOSPHATE) [Concomitant]
  16. DILANTIN (PHENYTOIN) [Concomitant]
  17. CATAPRES (CLONIDINE) [Concomitant]
  18. TRANDATE (LABETALOL HYDROCHLORIDE) [Concomitant]
  19. LONITEN (MINOXIDIL) [Concomitant]
  20. VYTORIN (EZETIMIBE, SIMVASTATIN) [Concomitant]
  21. TESSALON PERLE (BENZONATATE) [Concomitant]
  22. ROCALTROL (CALCITRIOL) [Concomitant]
  23. VITAMIN D (ERGOCALCIFEROL) [Concomitant]
  24. FLOMAX (MORNIFLUMATE) [Concomitant]
  25. ADVAIR (FLUTICASONE PROPIONATE, SALMETEROL XINAFOATE) [Concomitant]
  26. LASIX (FUROSEMIDE) [Concomitant]

REACTIONS (16)
  - Dyspnoea [None]
  - Urticaria [None]
  - Anxiety [None]
  - Wheezing [None]
  - Hypersensitivity [None]
  - Nausea [None]
  - Muscular weakness [None]
  - Throat irritation [None]
  - Pulmonary congestion [None]
  - Somnolence [None]
  - Dizziness [None]
  - Lethargy [None]
  - Haemoglobin decreased [None]
  - Blood glucose increased [None]
  - Electrocardiogram QT prolonged [None]
  - Cardiomegaly [None]
